FAERS Safety Report 13006564 (Version 2)
Quarter: 2017Q1

REPORT INFORMATION
  Report Type: Spontaneous
  Country: FR (occurrence: FR)
  Receive Date: 20161207
  Receipt Date: 20170106
  Transmission Date: 20170428
  Serious: Yes (Other)
  Sender: FDA-Public Use
  Company Number: FR-TEVA-715707ROM

PATIENT
  Age: 53 Year
  Sex: Female

DRUGS (13)
  1. PREDNISONE. [Suspect]
     Active Substance: PREDNISONE
     Dosage: SYSTEMATICALLY GIVEN BEFORE CHEMOTHERAPY
     Route: 048
     Dates: start: 201604, end: 201609
  2. SPAGULAX [Concomitant]
     Active Substance: PLANTAGO OVATA SEED
  3. PRIMPERAN [Concomitant]
     Active Substance: METOCLOPRAMIDE HYDROCHLORIDE
  4. DUROGESIC [Concomitant]
     Active Substance: FENTANYL
     Dosage: STARTED SINCE DIAGNOSIS OF CANCER
     Dates: start: 2016
  5. TEVAGRASTIM 48 MUI/0.8 ML [Suspect]
     Active Substance: FILGRASTIM
     Indication: NEUTROPENIA
     Dosage: 1 DOSAGE FORMS DAILY; FORM: SOLUTION FOR INJECTION OR DRIP
     Route: 042
     Dates: start: 20160923, end: 20160924
  6. ONDANSETRON. [Suspect]
     Active Substance: ONDANSETRON
     Indication: ANTIEMETIC SUPPORTIVE CARE
     Route: 048
     Dates: start: 20160406
  7. RECIVIT [Concomitant]
     Dosage: STARTED SINCE DIAGNOSIS OF CANCER
     Dates: start: 2016
  8. GEMCITABINE [Suspect]
     Active Substance: GEMCITABINE\GEMCITABINE HYDROCHLORIDE
     Indication: ADENOCARCINOMA PANCREAS
     Route: 042
     Dates: start: 20160406, end: 20160921
  9. EMEND [Suspect]
     Active Substance: APREPITANT
     Indication: ANTIEMETIC SUPPORTIVE CARE
     Dosage: GIVEN BEFORE ADMINISTRATION OF  CHEMOTHERAPY DURING 3 DAYS
     Route: 048
     Dates: start: 201604, end: 201609
  10. ALPRAZOLAM. [Concomitant]
     Active Substance: ALPRAZOLAM
     Dosage: LONG-STANDING TREATMENT
  11. LEVOTHYROX [Concomitant]
     Active Substance: LEVOTHYROXINE
     Indication: HYPOTHYROIDISM
     Dosage: STARTED 5 YEARS AGO
     Dates: start: 2011
  12. ABRAXANE [Suspect]
     Active Substance: PACLITAXEL
     Indication: ADENOCARCINOMA PANCREAS
     Route: 042
     Dates: start: 20160406, end: 20160921
  13. FORLAX [Concomitant]
     Active Substance: POLYETHYLENE GLYCOL 4000

REACTIONS (3)
  - Liver disorder [Not Recovered/Not Resolved]
  - Cholestasis [Not Recovered/Not Resolved]
  - Jaundice [Not Recovered/Not Resolved]

NARRATIVE: CASE EVENT DATE: 20161004
